FAERS Safety Report 19528925 (Version 1)
Quarter: 2021Q3

REPORT INFORMATION
  Report Type: Report from Study
  Country: BR (occurrence: BR)
  Receive Date: 20210713
  Receipt Date: 20210713
  Transmission Date: 20211014
  Serious: Yes (Hospitalization)
  Sender: FDA-Public Use
  Company Number: BR-AMGEN-BRASL2021079599

PATIENT
  Age: 50 Year
  Sex: Male

DRUGS (1)
  1. VECTIBIX [Suspect]
     Active Substance: PANITUMUMAB
     Indication: COLORECTAL CANCER METASTATIC
     Dosage: UNK UNK, Q2WK
     Route: 042
     Dates: start: 202103, end: 2021

REACTIONS (5)
  - Ear pain [Recovering/Resolving]
  - Hypophagia [Recovering/Resolving]
  - Rash [Not Recovered/Not Resolved]
  - Skin wound [Recovering/Resolving]
  - Oral pain [Recovering/Resolving]

NARRATIVE: CASE EVENT DATE: 2021
